FAERS Safety Report 18396316 (Version 5)
Quarter: 2021Q1

REPORT INFORMATION
  Report Type: Other
  Country: US (occurrence: US)
  Receive Date: 20201019
  Receipt Date: 20210205
  Transmission Date: 20210419
  Serious: Yes (Hospitalization, Other)
  Sender: FDA-Public Use
  Company Number: US-ROCHE-2694678

PATIENT
  Sex: Female
  Weight: 109.2 kg

DRUGS (17)
  1. LOPERAMIDE [Concomitant]
     Active Substance: LOPERAMIDE
     Indication: DIARRHOEA
     Dosage: EVERY 4 HOURS AFTER EACH LOOSE STOLL UNTIL SYMPTOMS CONTROLLED DO NOT EXCEED 8 MG TOTAL DOSE IN 24 H
     Route: 048
  2. FLUTICASONE PROPIONATE. [Concomitant]
     Active Substance: FLUTICASONE PROPIONATE
     Dosage: 2 SPRAY
  3. LEXAPRO [Concomitant]
     Active Substance: ESCITALOPRAM OXALATE
     Route: 048
  4. CARVEDILOL. [Concomitant]
     Active Substance: CARVEDILOL
     Dates: end: 20190906
  5. POTASSIUM CHLORIDE ER [Concomitant]
     Active Substance: POTASSIUM CHLORIDE
     Route: 048
  6. VALTREX [Concomitant]
     Active Substance: VALACYCLOVIR HYDROCHLORIDE
     Route: 048
  7. BUSPIRONE [Concomitant]
     Active Substance: BUSPIRONE HYDROCHLORIDE
     Route: 048
  8. XELODA [Suspect]
     Active Substance: CAPECITABINE
     Indication: BREAST CANCER FEMALE
     Dosage: TAKE 4 TABLET(S) BY MOUTH EVERY MORNING AND TAKE 3 TABLET(S) BY MOUTH EVERY EVENING 2 WEEK(S) ON, 1
     Route: 048
  9. VITAMIN D3 [Concomitant]
     Active Substance: CHOLECALCIFEROL
     Route: 048
  10. FENOFIBRATE. [Concomitant]
     Active Substance: FENOFIBRATE
     Route: 048
     Dates: start: 20180908
  11. NORVASC [Concomitant]
     Active Substance: AMLODIPINE BESYLATE
     Route: 048
  12. OLMESARTANA + HIDROCLOROTIAZIDA [Concomitant]
     Active Substance: HYDROCHLOROTHIAZIDE\OLMESARTAN MEDOXOMIL
     Route: 048
     Dates: start: 20200906
  13. VASCEPA [Concomitant]
     Active Substance: ICOSAPENT ETHYL
     Route: 048
  14. TUKYSA [Concomitant]
     Active Substance: TUCATINIB
  15. ALPRAZOLAM. [Concomitant]
     Active Substance: ALPRAZOLAM
     Indication: ANXIETY
     Dosage: 0.25?0.5 MG EVERY 8 HOURS
     Route: 048
  16. SOMA [Concomitant]
     Active Substance: CARISOPRODOL
     Indication: PAIN
     Route: 048
  17. WELLBUTRIN SR [Concomitant]
     Active Substance: BUPROPION HYDROCHLORIDE
     Route: 048

REACTIONS (11)
  - Atrial fibrillation [Unknown]
  - Sneezing [Unknown]
  - COVID-19 [Unknown]
  - Arthritis [Unknown]
  - Feeling jittery [Unknown]
  - Spinal pain [Unknown]
  - Muscle spasms [Unknown]
  - Fatigue [Unknown]
  - Musculoskeletal chest pain [Unknown]
  - Brain oedema [Unknown]
  - Somnolence [Unknown]
